FAERS Safety Report 6238835-5 (Version None)
Quarter: 2009Q2

REPORT INFORMATION
  Report Type: 
  Country: None (occurrence: None)
  Receive Date: 20090622
  Receipt Date: 20090610
  Transmission Date: 20091009
  Serious: Yes (Other)
  Sender: FDA-Public Use
  Company Number: JP-PFIZER INC-2009226230

PATIENT
  Age: 68 Year

DRUGS (2)
  1. VORICONAZOLE [Suspect]
     Indication: BRONCHOPULMONARY ASPERGILLOSIS
     Dosage: 100 MG, 2X/DAY
     Route: 042
     Dates: start: 20061101, end: 20070201
  2. VORICONAZOLE [Suspect]
     Dosage: UNK
     Route: 048
     Dates: start: 20070201, end: 20080401

REACTIONS (1)
  - INAPPROPRIATE ANTIDIURETIC HORMONE SECRETION [None]
